FAERS Safety Report 5734313-8 (Version None)
Quarter: 2008Q2

REPORT INFORMATION
  Report Type: 
  Country: None (occurrence: None)
  Receive Date: 20080512
  Receipt Date: 20080502
  Transmission Date: 20081010
  Serious: Yes (Other)
  Sender: FDA-Public Use
  Company Number: GB-JNJFOC-20080500573

PATIENT
  Age: 76 Year
  Sex: Male

DRUGS (1)
  1. REMICADE [Suspect]
     Indication: GOUT
     Route: 042

REACTIONS (3)
  - INFUSION RELATED REACTION [None]
  - PAIN IN EXTREMITY [None]
  - TROPONIN INCREASED [None]
